FAERS Safety Report 15657757 (Version 2)
Quarter: 2018Q4

REPORT INFORMATION
  Report Type: Spontaneous
  Country: US (occurrence: US)
  Receive Date: 20181126
  Receipt Date: 20181210
  Transmission Date: 20190205
  Serious: Yes (Hospitalization, Other)
  Sender: FDA-Public Use
  Company Number: US-PFIZER INC-2018476032

PATIENT
  Age: 54 Year
  Sex: Male

DRUGS (1)
  1. OXYMETAZOLINE [Suspect]
     Active Substance: OXYMETAZOLINE
     Indication: RHINORRHOEA
     Dosage: UNK
     Route: 045

REACTIONS (1)
  - Angina pectoris [Recovered/Resolved]
